FAERS Safety Report 13991580 (Version 2)
Quarter: 2017Q4

REPORT INFORMATION
  Report Type: Spontaneous
  Country: US (occurrence: US)
  Receive Date: 20170920
  Receipt Date: 20171123
  Transmission Date: 20180321
  Serious: No
  Sender: FDA-Public Use
  Company Number: US-JNJFOC-20170802334

PATIENT
  Sex: Male

DRUGS (8)
  1. RISPERIDONE. [Suspect]
     Active Substance: RISPERIDONE
     Indication: AUTISM SPECTRUM DISORDER
     Route: 048
     Dates: start: 20121231, end: 20130722
  2. RISPERIDONE. [Suspect]
     Active Substance: RISPERIDONE
     Indication: PRODUCT USED FOR UNKNOWN INDICATION
     Route: 048
  3. INVEGA [Suspect]
     Active Substance: PALIPERIDONE
     Indication: ATTENTION DEFICIT/HYPERACTIVITY DISORDER
     Route: 048
     Dates: start: 20110826, end: 20111220
  4. INVEGA [Suspect]
     Active Substance: PALIPERIDONE
     Indication: BIPOLAR DISORDER
     Route: 048
     Dates: start: 20110826, end: 20111220
  5. RISPERDAL [Suspect]
     Active Substance: RISPERIDONE
     Indication: PRODUCT USED FOR UNKNOWN INDICATION
     Route: 048
     Dates: start: 20121231, end: 20130822
  6. RISPERIDONE. [Suspect]
     Active Substance: RISPERIDONE
     Indication: ATTENTION DEFICIT/HYPERACTIVITY DISORDER
     Route: 048
     Dates: start: 20121231, end: 20130722
  7. RISPERIDONE. [Suspect]
     Active Substance: RISPERIDONE
     Indication: BIPOLAR DISORDER
     Route: 048
     Dates: start: 20121231, end: 20130722
  8. INVEGA [Suspect]
     Active Substance: PALIPERIDONE
     Indication: AUTISM SPECTRUM DISORDER
     Route: 048
     Dates: start: 20110826, end: 20111220

REACTIONS (2)
  - Gynaecomastia [Unknown]
  - Emotional disorder [Unknown]
